FAERS Safety Report 15336396 (Version 5)
Quarter: 2019Q2

REPORT INFORMATION
  Report Type: Spontaneous
  Country: US (occurrence: US)
  Receive Date: 20180830
  Receipt Date: 20190617
  Transmission Date: 20190711
  Serious: Yes (Hospitalization)
  Sender: FDA-Public Use
  Company Number: US-ACTELION-A-US2018-177743

PATIENT
  Sex: Male

DRUGS (1)
  1. TRACLEER [Suspect]
     Active Substance: BOSENTAN
     Indication: PULMONARY HYPERTENSION
     Dosage: 125 MG, UNK
     Route: 048
     Dates: start: 20180726

REACTIONS (6)
  - Decreased appetite [Unknown]
  - Adverse event [Unknown]
  - Fluid retention [Recovering/Resolving]
  - Feeding disorder [Unknown]
  - Oedema peripheral [Unknown]
  - Ageusia [Unknown]
